FAERS Safety Report 8220751-0 (Version None)
Quarter: 2012Q1

REPORT INFORMATION
  Report Type: 
  Country: None (occurrence: None)
  Receive Date: 20120320
  Receipt Date: 20120307
  Transmission Date: 20120608
  Serious: Yes (Other)
  Sender: FDA-Public Use
  Company Number: US-MYLANLABS-2009S1002272

PATIENT
  Age: 20 Year
  Sex: Female

DRUGS (3)
  1. ORAL CONTRACEPTIVE NOS [Concomitant]
     Route: 048
  2. AMNESTEEM [Suspect]
     Route: 048
     Dates: start: 20080901
  3. ANTIBIOTICS [Concomitant]
     Indication: NASOPHARYNGITIS
     Route: 048

REACTIONS (3)
  - ABORTION INDUCED [None]
  - MATERNAL EXPOSURE DURING PREGNANCY [None]
  - NASOPHARYNGITIS [None]
